FAERS Safety Report 9351629 (Version 2)
Quarter: 2013Q4

REPORT INFORMATION
  Report Type: Spontaneous
  Country: FR (occurrence: FR)
  Receive Date: 20130617
  Receipt Date: 20131210
  Transmission Date: 20140711
  Serious: Yes (Disabling)
  Sender: FDA-Public Use
  Company Number: FR-BMSGILMSD-2013-0077054

PATIENT
  Age: 0 Day
  Sex: Male
  Weight: 2.8 kg

DRUGS (7)
  1. ATRIPLA [Suspect]
     Indication: HIV INFECTION
     Dosage: 1 DF, UNK
     Route: 064
     Dates: start: 20110510, end: 20130306
  2. TRUVADA [Suspect]
     Indication: HIV INFECTION
     Dosage: 1 DF, QD
     Route: 064
     Dates: start: 20130307, end: 20130430
  3. KALETRA [Suspect]
     Indication: HIV INFECTION
     Dosage: 2 DF, BID
     Route: 064
     Dates: start: 20130307, end: 20130430
  4. AMLOR [Suspect]
     Indication: HYPERTENSION
     Dosage: 5 MG, UNK
     Route: 064
     Dates: start: 20130110, end: 20130118
  5. ATACAND [Suspect]
     Indication: HYPERTENSION
     Dosage: 16 MG, UNK
     Route: 064
     Dates: start: 20130110, end: 20130118
  6. RHOPHYLAC [Concomitant]
     Dosage: UNK
     Route: 064
     Dates: start: 20130222
  7. LOXEN [Concomitant]
     Dosage: UNK
     Route: 064
     Dates: start: 20130222

REACTIONS (2)
  - Congenital bowing of long bones [Not Recovered/Not Resolved]
  - Limb deformity [Not Recovered/Not Resolved]
